FAERS Safety Report 8910846 (Version 1)
Quarter: 2012Q4

REPORT INFORMATION
  Report Type: 
  Country: US (occurrence: US)
  Receive Date: 20121115
  Receipt Date: 20121115
  Transmission Date: 20130627
  Serious: Yes (Hospitalization, Disabling)
  Sender: FDA-Public Use
  Company Number: US-ASTRAZENECA-2012SE72246

PATIENT
  Age: 55 Year
  Sex: Female

DRUGS (2)
  1. CAPRELSA [Suspect]
     Indication: THYROID CANCER
     Route: 048
     Dates: start: 20120905, end: 20121023
  2. CAPRELSA [Suspect]
     Indication: THYROID CANCER
     Route: 048
     Dates: start: 20120905, end: 20121023

REACTIONS (7)
  - Haemorrhagic stroke [Recovered/Resolved with Sequelae]
  - Malignant hypertension [Unknown]
  - Aphasia [Unknown]
  - Abasia [Unknown]
  - Diarrhoea [Unknown]
  - Fatigue [Unknown]
  - Blood pressure increased [Not Recovered/Not Resolved]
